FAERS Safety Report 9305173 (Version 1)
Quarter: 2013Q2

REPORT INFORMATION
  Report Type: Report from Study
  Country: US (occurrence: US)
  Receive Date: 20130523
  Receipt Date: 20130523
  Transmission Date: 20140414
  Serious: Yes (Other)
  Sender: FDA-Public Use
  Company Number: PHEH2013US011357

PATIENT
  Sex: Male

DRUGS (1)
  1. FANAPT [Suspect]

REACTIONS (1)
  - Gallbladder disorder [Unknown]
